FAERS Safety Report 14101873 (Version 2)
Quarter: 2017Q4

REPORT INFORMATION
  Report Type: Spontaneous
  Country: US (occurrence: US)
  Receive Date: 20171018
  Receipt Date: 20171113
  Transmission Date: 20180321
  Serious: Yes (Death, Other)
  Sender: FDA-Public Use
  Company Number: US-WEST-WARD PHARMACEUTICALS CORP.-US-H14001-17-03929

PATIENT
  Age: 60 Year
  Sex: Female
  Weight: 139 kg

DRUGS (2)
  1. PREDNISONE. [Suspect]
     Active Substance: PREDNISONE
     Indication: GRAFT VERSUS HOST DISEASE
     Route: 048
     Dates: start: 20170627
  2. INCB018424 [Suspect]
     Active Substance: RUXOLITINIB
     Indication: GRAFT VERSUS HOST DISEASE
     Route: 048
     Dates: start: 20170701, end: 20170709

REACTIONS (4)
  - Atrial fibrillation [Unknown]
  - Septic shock [Fatal]
  - Deep vein thrombosis [Unknown]
  - Immunosuppression [Unknown]

NARRATIVE: CASE EVENT DATE: 20170703
